FAERS Safety Report 9195490 (Version 5)
Quarter: 2014Q1

REPORT INFORMATION
  Report Type: Report from Study
  Country: DE (occurrence: DE)
  Receive Date: 20130328
  Receipt Date: 20140318
  Transmission Date: 20141002
  Serious: Yes (Hospitalization, Other)
  Sender: FDA-Public Use
  Company Number: DE-BIOGENIDEC-2013BI026590

PATIENT
  Age: 38 Year
  Sex: Male
  Weight: 98 kg

DRUGS (5)
  1. TYSABRI [Suspect]
     Indication: MULTIPLE SCLEROSIS
     Route: 042
     Dates: start: 20090122, end: 20130215
  2. MUSCLE RELAXANTS [Concomitant]
  3. SATIVEX [Concomitant]
     Indication: MUSCLE SPASTICITY
     Dates: start: 20120911
  4. METAMIZOL [Concomitant]
     Indication: PAIN
     Route: 048
     Dates: start: 20070914
  5. METAMIZOL [Concomitant]
     Indication: MUSCLE SPASTICITY
     Route: 048
     Dates: start: 20070914

REACTIONS (2)
  - Progressive multifocal leukoencephalopathy [Not Recovered/Not Resolved]
  - Immune reconstitution inflammatory syndrome [Not Recovered/Not Resolved]
